FAERS Safety Report 19616729 (Version 1)
Quarter: 2021Q3

REPORT INFORMATION
  Report Type: Spontaneous
  Country: US (occurrence: US)
  Receive Date: 20210727
  Receipt Date: 20210727
  Transmission Date: 20211014
  Serious: No
  Sender: FDA-Public Use
  Company Number: US-ABBVIE-21K-163-3882087-00

PATIENT
  Age: 36 Year
  Sex: Female
  Weight: 52.21 kg

DRUGS (15)
  1. SYNTHROID [Suspect]
     Active Substance: LEVOTHYROXINE SODIUM
     Dosage: ALTERNATED BETWEEN 112 AND 75 MCG EVERY OTHER DAY
     Route: 048
     Dates: start: 20200713, end: 20200803
  2. SYNTHROID [Suspect]
     Active Substance: LEVOTHYROXINE SODIUM
     Dosage: ALTERNATED BETWEEN 100 AND 112 MCG EVERY OTHER DAY
     Route: 048
     Dates: start: 20201207, end: 20210322
  3. COVID?19 VACCINE [Concomitant]
     Dosage: PFIZER MANUFACTURER
     Route: 030
     Dates: start: 20210220, end: 20210220
  4. PRENATAL MULTIVITAMIN + DHA [Concomitant]
     Indication: SUPPLEMENTATION THERAPY
  5. COENZYME Q10 [Concomitant]
     Active Substance: DIETARY SUPPLEMENT\UBIDECARENONE
     Indication: SUPPLEMENTATION THERAPY
  6. SYNTHROID [Suspect]
     Active Substance: LEVOTHYROXINE SODIUM
     Indication: HYPOTHYROIDISM
     Dosage: ADJUSTED SEVERAL TIMES SINCE INITIATION BETWEEN DAILY DOSES OF 150?175 MCG.
     Route: 048
     Dates: start: 2002, end: 20200611
  7. SYNTHROID [Suspect]
     Active Substance: LEVOTHYROXINE SODIUM
     Route: 048
     Dates: start: 20200630, end: 20200713
  8. VITAMIN B12 [Concomitant]
     Active Substance: CYANOCOBALAMIN
     Indication: SUPPLEMENTATION THERAPY
  9. SYNTHROID [Suspect]
     Active Substance: LEVOTHYROXINE SODIUM
     Route: 048
     Dates: start: 20210322
  10. FISH OIL [Concomitant]
     Active Substance: FISH OIL
     Indication: SUPPLEMENTATION THERAPY
  11. SYNTHROID [Suspect]
     Active Substance: LEVOTHYROXINE SODIUM
     Dosage: ALTERNATED BETWEEN 88 AND 75 MCG EVERY OTHER DAY
     Route: 048
     Dates: start: 20200803, end: 20201026
  12. COVID?19 VACCINE [Concomitant]
     Indication: COVID-19 IMMUNISATION
     Dosage: PFIZER MANUFACTURER
     Route: 030
     Dates: start: 20210126, end: 20210126
  13. SYNTHROID [Suspect]
     Active Substance: LEVOTHYROXINE SODIUM
     Dosage: ALTERNATED BETWEEN 150 AND 75 MCG EVERY OTHER DAY
     Route: 048
     Dates: start: 20200611, end: 20200630
  14. SYNTHROID [Suspect]
     Active Substance: LEVOTHYROXINE SODIUM
     Route: 048
     Dates: start: 20201026, end: 20201207
  15. MAGNESIUM [Concomitant]
     Active Substance: MAGNESIUM
     Indication: SUPPLEMENTATION THERAPY

REACTIONS (1)
  - Blood test abnormal [Not Recovered/Not Resolved]

NARRATIVE: CASE EVENT DATE: 202006
